FAERS Safety Report 6823779-8 (Version None)
Quarter: 2010Q3

REPORT INFORMATION
  Report Type: 
  Country: None (occurrence: None)
  Receive Date: 20100708
  Receipt Date: 20061204
  Transmission Date: 20110219
  Serious: No
  Sender: FDA-Public Use
  Company Number: US-PFIZER INC-2006099882

PATIENT
  Sex: Female
  Weight: 89.81 kg

DRUGS (5)
  1. CHANTIX [Suspect]
     Indication: EX-TOBACCO USER
     Dates: start: 20060809
  2. NORVASC [Concomitant]
  3. PAROXETINE HCL [Concomitant]
  4. DIOVAN HCT [Concomitant]
  5. XANAX [Concomitant]

REACTIONS (6)
  - ABNORMAL DREAMS [None]
  - CHILLS [None]
  - FEELING ABNORMAL [None]
  - HEADACHE [None]
  - IRRITABILITY [None]
  - NAUSEA [None]
